FAERS Safety Report 4594217-3 (Version None)
Quarter: 2005Q1

REPORT INFORMATION
  Report Type: 
  Country: None (occurrence: None)
  Receive Date: 20050301
  Receipt Date: 20040714
  Transmission Date: 20050727
  Serious: No
  Sender: FDA-Public Use
  Company Number: US-GLAXOSMITHKLINE-A0518241A

PATIENT
  Age: 70 Year
  Sex: Female

DRUGS (6)
  1. VALTREX [Suspect]
     Dosage: 1000MG PER DAY
     Route: 048
     Dates: start: 20040713
  2. ZOVIRAX [Concomitant]
  3. INSULIN [Concomitant]
  4. PAXIL [Concomitant]
  5. BUSPAR [Concomitant]
  6. AVANDIA [Concomitant]

REACTIONS (4)
  - ABDOMINAL PAIN UPPER [None]
  - HEADACHE [None]
  - NAUSEA [None]
  - PHARYNGOLARYNGEAL PAIN [None]
